FAERS Safety Report 8150397-4 (Version None)
Quarter: 2012Q1

REPORT INFORMATION
  Report Type: 
  Country: None (occurrence: None)
  Receive Date: 20120220
  Receipt Date: 20120215
  Transmission Date: 20120608
  Serious: Yes (Hospitalization)
  Sender: FDA-Public Use
  Company Number: US-PFIZER INC-2012041539

PATIENT
  Sex: Male
  Weight: 84.354 kg

DRUGS (5)
  1. PROTONIX [Suspect]
     Indication: GASTRIC DISORDER
     Dosage: 40 MG, DAILY
  2. LISINOPRIL [Concomitant]
     Indication: HYPERTENSION
     Dosage: 10 MG, DAILY
  3. PLAVIX [Concomitant]
     Indication: ANTIPLATELET THERAPY
     Dosage: 75 MG, DAILY
  4. ARTHROTEC [Suspect]
     Dosage: 200/50 MCG/MG, 2X/DAY
     Route: 048
  5. SYMBICORT [Concomitant]
     Indication: DYSPNOEA
     Dosage: 160/4.5 UG, 2X/DAY

REACTIONS (1)
  - MYOCARDIAL INFARCTION [None]
